FAERS Safety Report 9196773 (Version 1)
Quarter: 2013Q1

REPORT INFORMATION
  Report Type: Spontaneous
  Country: DE (occurrence: DE)
  Receive Date: 20130328
  Receipt Date: 20130328
  Transmission Date: 20140127
  Serious: Yes (Other)
  Sender: FDA-Public Use
  Company Number: DE-UCBSA-081380

PATIENT
  Age: 42 Year
  Sex: Male

DRUGS (9)
  1. LACOSAMIDE [Suspect]
     Indication: EPILEPSY
     Dosage: TOTAL DAILY DOSE: 400 MG
  2. KEPPRA [Suspect]
     Indication: EPILEPSY
     Dosage: 3000 MG
  3. RETIGABINE [Concomitant]
     Indication: EPILEPSY
     Dosage: 300 MG
  4. RETIGABINE [Concomitant]
     Indication: EPILEPSY
     Dosage: 1100 MG
  5. RETIGABINE [Concomitant]
     Indication: EPILEPSY
     Dosage: TOTAL DAILY DOSE: 600 MG
  6. LAMOTRIGINE [Concomitant]
     Indication: EPILEPSY
     Dosage: 500 MG
  7. ESLICARBAZEPINE [Concomitant]
     Indication: EPILEPSY
     Dosage: 200 MG
  8. CLOBAZAM [Concomitant]
     Indication: EPILEPSY
     Dosage: TOTAL DAILY DOSE: 20 MG
  9. VALPROATE [Concomitant]
     Indication: EPILEPSY
     Dosage: TOTAL DAILY DOSE: 500 MG

REACTIONS (6)
  - Status epilepticus [Recovered/Resolved]
  - Mutism [Unknown]
  - Hypertensive crisis [Unknown]
  - Drug ineffective [Recovered/Resolved]
  - Cognitive disorder [Recovering/Resolving]
  - Gait disturbance [Recovered/Resolved]
